FAERS Safety Report 24608913 (Version 2)
Quarter: 2025Q3

REPORT INFORMATION
  Report Type: Report from Study
  Country: US (occurrence: US)
  Receive Date: 20241112
  Receipt Date: 20250803
  Transmission Date: 20251020
  Serious: Yes (Other)
  Sender: ALEXION PHARMACEUTICALS
  Company Number: US-ALXN-202411USA005244US

PATIENT
  Sex: Female

DRUGS (1)
  1. STRENSIQ [Suspect]
     Active Substance: ASFOTASE ALFA
     Route: 065

REACTIONS (5)
  - Deafness [Unknown]
  - Alopecia [Unknown]
  - Lipoatrophy [Unknown]
  - Pain in extremity [Unknown]
  - Tinnitus [Unknown]
